FAERS Safety Report 11898396 (Version 1)
Quarter: 2016Q1

REPORT INFORMATION
  Report Type: Other
  Country: GB (occurrence: GB)
  Receive Date: 20160108
  Receipt Date: 20160108
  Transmission Date: 20160526
  Serious: Yes (Life-Threatening, Hospitalization)
  Sender: FDA-Public Use
  Company Number: GB-MYLANLABS-2016M1000483

PATIENT

DRUGS (8)
  1. RAMIPRIL. [Concomitant]
     Active Substance: RAMIPRIL
     Dosage: UNK
  2. LORATADINE. [Concomitant]
     Active Substance: LORATADINE
     Dosage: UNK
  3. RIFAMPICIN [Suspect]
     Active Substance: RIFAMPIN
     Indication: ENDOCARDITIS
     Dosage: 450 MG, BID
     Route: 048
     Dates: start: 20151209, end: 20151211
  4. AMOXICILLIN. [Concomitant]
     Active Substance: AMOXICILLIN
     Dosage: UNK
  5. DALTEPARIN [Concomitant]
     Active Substance: DALTEPARIN
     Dosage: UNK
  6. FERROUS FUMARATE [Concomitant]
     Active Substance: FERROUS FUMARATE
     Dosage: UNK
  7. OLANZAPINE. [Concomitant]
     Active Substance: OLANZAPINE
     Dosage: PATIENT HAS BEEN TAKING OLANZAPINE SINCE THE BEGINNING OF NOVEMBER
     Dates: start: 201511
  8. GENTAMICIN. [Concomitant]
     Active Substance: GENTAMICIN
     Dosage: UNK

REACTIONS (2)
  - Neutropenia [Recovering/Resolving]
  - Sepsis [Recovering/Resolving]

NARRATIVE: CASE EVENT DATE: 20151210
